FAERS Safety Report 8009250-9 (Version None)
Quarter: 2011Q4

REPORT INFORMATION
  Report Type: 
  Country: None (occurrence: None)
  Receive Date: 20111227
  Receipt Date: 20111221
  Transmission Date: 20120403
  Serious: Yes (Hospitalization)
  Sender: FDA-Public Use
  Company Number: GXKR2011DE003647

PATIENT

DRUGS (1)
  1. OXALIPLATIN [Suspect]
     Indication: COLON CANCER
     Route: 042
     Dates: start: 20110120

REACTIONS (5)
  - BLOOD PRESSURE SYSTOLIC INCREASED [None]
  - TACHYCARDIA [None]
  - DYSPNOEA [None]
  - HYPERTENSIVE CRISIS [None]
  - CHILLS [None]
